FAERS Safety Report 23755630 (Version 1)
Quarter: 2024Q2

REPORT INFORMATION
  Report Type: Spontaneous
  Country: ES (occurrence: ES)
  Receive Date: 20240418
  Receipt Date: 20240418
  Transmission Date: 20240716
  Serious: Yes (Other)
  Sender: FDA-Public Use
  Company Number: None

PATIENT
  Age: 66 Year
  Sex: Female

DRUGS (1)
  1. MIRTAZAPINE [Suspect]
     Active Substance: MIRTAZAPINE
     Indication: Depression
     Dosage: 15 MILLIGRAM, QD (MIRTAZAPINE 15 MG 30 TABLET)
     Dates: start: 20240304

REACTIONS (3)
  - Pruritus [Unknown]
  - Erythema [Unknown]
  - Erythema [Unknown]

NARRATIVE: CASE EVENT DATE: 20240321
